FAERS Safety Report 18449813 (Version 7)
Quarter: 2021Q1

REPORT INFORMATION
  Report Type: Report from Study
  Country: CN (occurrence: CN)
  Receive Date: 20201030
  Receipt Date: 20210205
  Transmission Date: 20210419
  Serious: Yes (Death, Hospitalization)
  Sender: FDA-Public Use
  Company Number: CN-EISAI MEDICAL RESEARCH-EC-2020-083017

PATIENT
  Age: 54 Year
  Sex: Male
  Weight: 72 kg

DRUGS (10)
  1. BUDESONIDE. [Concomitant]
     Active Substance: BUDESONIDE
     Dates: start: 20200926, end: 20201026
  2. VASELINE PURE [Concomitant]
     Active Substance: PETROLATUM
     Dates: start: 20200813, end: 20201026
  3. PEMBROLIZUMAB. [Suspect]
     Active Substance: PEMBROLIZUMAB
     Indication: NON-SMALL CELL LUNG CANCER METASTATIC
     Route: 041
     Dates: start: 20200710, end: 20200917
  4. PEMBROLIZUMAB. [Suspect]
     Active Substance: PEMBROLIZUMAB
     Route: 041
     Dates: start: 20201009, end: 20201009
  5. LENVATINIB [Suspect]
     Active Substance: LENVATINIB
     Indication: NON-SMALL CELL LUNG CANCER METASTATIC
     Route: 048
     Dates: start: 20200710, end: 20201026
  6. SEA WATER [Concomitant]
     Active Substance: SEA WATER
     Dates: start: 20200926, end: 20201026
  7. MINERALS (UNSPECIFIED) (+) VITAMINS (UNSPECIFIED) [Concomitant]
     Active Substance: MINERALS\VITAMINS
     Dates: start: 20200917, end: 20201026
  8. NIFEDIPINE. [Concomitant]
     Active Substance: NIFEDIPINE
     Dates: start: 201301, end: 20201026
  9. CELEBREX [Concomitant]
     Active Substance: CELECOXIB
     Dates: start: 20200810, end: 20201026
  10. PREGABALIN. [Concomitant]
     Active Substance: PREGABALIN
     Dates: start: 20200810, end: 20201026

REACTIONS (1)
  - Haemoptysis [Fatal]

NARRATIVE: CASE EVENT DATE: 20201024
